FAERS Safety Report 15675074 (Version 2)
Quarter: 2019Q1

REPORT INFORMATION
  Report Type: Spontaneous
  Country: US (occurrence: US)
  Receive Date: 20181130
  Receipt Date: 20190104
  Transmission Date: 20190417
  Serious: No
  Sender: FDA-Public Use
  Company Number: US-PFIZER INC-2018480109

PATIENT
  Age: 67 Year
  Sex: Male

DRUGS (3)
  1. CHANTIX [Suspect]
     Active Substance: VARENICLINE TARTRATE
     Dosage: UNK (BEGINNING OF JULY, HE BEGAN CHANTIX AGAIN)
  2. CHANTIX [Suspect]
     Active Substance: VARENICLINE TARTRATE
     Indication: SMOKING CESSATION THERAPY
     Dosage: UNK
  3. CHANTIX [Suspect]
     Active Substance: VARENICLINE TARTRATE
     Dosage: 20 MG, UNK (ONCE)

REACTIONS (6)
  - Oral mucosal blistering [Recovered/Resolved]
  - Rash [Not Recovered/Not Resolved]
  - Lip swelling [Recovered/Resolved]
  - Depression [Recovered/Resolved]
  - Ageusia [Not Recovered/Not Resolved]
  - Aggression [Recovered/Resolved]
